FAERS Safety Report 5444562-4 (Version None)
Quarter: 2007Q3

REPORT INFORMATION
  Report Type: 
  Country: None (occurrence: None)
  Receive Date: 20070904
  Receipt Date: 20070904
  Transmission Date: 20080115
  Serious: Yes (Disabling)
  Sender: FDA-Public Use
  Company Number: None

PATIENT
  Age: 70 Year
  Sex: Female
  Weight: 84.369 kg

DRUGS (1)
  1. TAXOL [Suspect]
     Indication: OVARIAN CANCER
     Dosage: 320MG  EVERY 3 WEEKS   IV  5.5 HOURS
     Route: 042
     Dates: start: 20070830, end: 20070830

REACTIONS (2)
  - CHEST DISCOMFORT [None]
  - NAUSEA [None]
